FAERS Safety Report 13578353 (Version 1)
Quarter: 2017Q2

REPORT INFORMATION
  Report Type: Spontaneous
  Country: PT (occurrence: PT)
  Receive Date: 20170524
  Receipt Date: 20170524
  Transmission Date: 20170830
  Serious: Yes (Death, Other)
  Sender: FDA-Public Use
  Company Number: PT-PRINSTON PHARMACEUTICAL INC.-2017PRN00228

PATIENT
  Age: 37 Year
  Sex: Male

DRUGS (6)
  1. ALCOHOL. [Suspect]
     Active Substance: ALCOHOL
     Route: 048
  2. METOCLOPRAMIDE. [Concomitant]
     Active Substance: METOCLOPRAMIDE
     Route: 048
  3. PENTOBARBITAL. [Suspect]
     Active Substance: PENTOBARBITAL
     Route: 048
  4. OXAZEPAM. [Suspect]
     Active Substance: OXAZEPAM
     Route: 048
  5. TEMAZEPAM. [Suspect]
     Active Substance: TEMAZEPAM
     Route: 048
  6. DIAZEPAM. [Suspect]
     Active Substance: DIAZEPAM
     Route: 048

REACTIONS (5)
  - Completed suicide [Fatal]
  - Poisoning [Not Recovered/Not Resolved]
  - Respiratory depression [Fatal]
  - Cardio-respiratory arrest [Fatal]
  - Drug interaction [Not Recovered/Not Resolved]
